FAERS Safety Report 8432202-1 (Version None)
Quarter: 2012Q2

REPORT INFORMATION
  Report Type: 
  Country: None (occurrence: None)
  Receive Date: 20120613
  Receipt Date: 20120605
  Transmission Date: 20120825
  Serious: Yes (Other)
  Sender: FDA-Public Use
  Company Number: US-BRISTOL-MYERS SQUIBB COMPANY-16664518

PATIENT
  Sex: Female

DRUGS (1)
  1. ORENCIA [Suspect]
     Dosage: NO OF INF:1
     Route: 042
     Dates: start: 20050101

REACTIONS (1)
  - OPEN WOUND [None]
